FAERS Safety Report 10053020 (Version 2)
Quarter: 2014Q2

REPORT INFORMATION
  Report Type: Spontaneous
  Country: US (occurrence: US)
  Receive Date: 20140402
  Receipt Date: 20140404
  Transmission Date: 20141212
  Serious: Yes (Other)
  Sender: FDA-Public Use
  Company Number: CHPA2014US004537

PATIENT
  Age: 80 Year
  Sex: Female

DRUGS (1)
  1. VOLTAREN GEL [Suspect]
     Dosage: UNK
     Route: 061

REACTIONS (4)
  - Arthralgia [Unknown]
  - Cystitis [Recovering/Resolving]
  - Drug administered at inappropriate site [Unknown]
  - Therapeutic response changed [Unknown]
